FAERS Safety Report 19561737 (Version 2)
Quarter: 2021Q3

REPORT INFORMATION
  Report Type: Report from Study
  Country: US (occurrence: US)
  Receive Date: 20210715
  Receipt Date: 20210820
  Transmission Date: 20211014
  Serious: Yes (Death, Other)
  Sender: FDA-Public Use
  Company Number: US-B.I. PHARMACEUTICALS,INC./RIDGEFIELD-2021-BI-115295

PATIENT
  Age: 68 Year
  Sex: Female
  Weight: 101.6 kg

DRUGS (1)
  1. AGGRENOX [Suspect]
     Active Substance: ASPIRIN\DIPYRIDAMOLE
     Indication: COVID-19
     Dosage: DYPYRIDAMOLE ER 200MG/ASPIRIN 25 MG
     Route: 048

REACTIONS (3)
  - COVID-19 [Fatal]
  - Acute respiratory distress syndrome [Fatal]
  - Hypoxia [Fatal]

NARRATIVE: CASE EVENT DATE: 20210309
